FAERS Safety Report 4550142-5 (Version None)
Quarter: 2005Q1

REPORT INFORMATION
  Report Type: 
  Country: None (occurrence: None)
  Receive Date: 20050110
  Receipt Date: 20041227
  Transmission Date: 20050727
  Serious: Yes (Other)
  Sender: FDA-Public Use
  Company Number: 200416276BCC

PATIENT
  Age: 50 Year
  Sex: Male
  Weight: 136.0791 kg

DRUGS (3)
  1. ALEVE [Suspect]
     Indication: ARTHROPATHY
     Dosage: PRN, ORAL
     Route: 048
  2. ALEVE [Suspect]
     Indication: BACK DISORDER
     Dosage: PRN, ORAL
     Route: 048
  3. ALEVE [Suspect]
     Indication: TOOTHACHE
     Dosage: PRN, ORAL
     Route: 048

REACTIONS (1)
  - MYOCARDIAL INFARCTION [None]
